FAERS Safety Report 10286381 (Version 1)
Quarter: 2014Q3

REPORT INFORMATION
  Report Type: Spontaneous
  Country: TR (occurrence: None)
  Receive Date: 20140703
  Receipt Date: 20140703
  Transmission Date: 20150326
  Serious: Yes (Hospitalization, Other)
  Sender: FDA-Public Use
  Company Number: UNT-2014-002948

PATIENT
  Age: 36 Year
  Sex: Female

DRUGS (3)
  1. SILDENAFIL (SILDENAFIL) [Concomitant]
     Active Substance: SILDENAFIL
  2. BOSENTAN (BOSENTAN) UNKNOWN [Concomitant]
     Active Substance: BOSENTAN ANHYDROUS
  3. REMODULIN [Suspect]
     Active Substance: TREPROSTINIL
     Indication: PULMONARY ARTERIAL HYPERTENSION
     Dosage: 0.00025 UG/KG
     Route: 058
     Dates: start: 20140530

REACTIONS (6)
  - Acute respiratory distress syndrome [None]
  - Exercise tolerance decreased [None]
  - Pulmonary oedema [None]
  - Pulmonary veno-occlusive disease [None]
  - Syncope [None]
  - Cyanosis [None]

NARRATIVE: CASE EVENT DATE: 20140604
